FAERS Safety Report 23355555 (Version 1)
Quarter: 2024Q1

REPORT INFORMATION
  Report Type: Spontaneous
  Country: GB (occurrence: GB)
  Receive Date: 20240102
  Receipt Date: 20240102
  Transmission Date: 20240410
  Serious: Yes (Other)
  Sender: FDA-Public Use
  Company Number: GB-JNJFOC-20230802266

PATIENT
  Age: 58 Year
  Sex: Female

DRUGS (2)
  1. ADALIMUMAB [Suspect]
     Active Substance: ADALIMUMAB\ISOPROPYL ALCOHOL
     Indication: Crohn^s disease
     Dosage: UNK
     Route: 065
  2. STELARA [Suspect]
     Active Substance: USTEKINUMAB
     Indication: Crohn^s disease
     Dosage: 90 MG, 55 DAY
     Route: 058
     Dates: start: 20230801

REACTIONS (7)
  - Crohn^s disease [Unknown]
  - Adverse drug reaction [Unknown]
  - Gastrointestinal inflammation [Unknown]
  - Malaise [Unknown]
  - Animal bite [Not Recovered/Not Resolved]
  - Inflammation [Not Recovered/Not Resolved]
  - Vulvovaginal candidiasis [Not Recovered/Not Resolved]

NARRATIVE: CASE EVENT DATE: 20230801
